FAERS Safety Report 15373437 (Version 1)
Quarter: 2018Q3

REPORT INFORMATION
  Report Type: Report from Study
  Country: US (occurrence: US)
  Receive Date: 20180912
  Receipt Date: 20180912
  Transmission Date: 20181010
  Serious: Yes (Hospitalization)
  Sender: FDA-Public Use
  Company Number: PHEH2018US036981

PATIENT
  Sex: Male

DRUGS (1)
  1. ZARXIO [Suspect]
     Active Substance: FILGRASTIM-SNDZ
     Indication: BONE MARROW FAILURE
     Dosage: 480 MG, QD
     Route: 042
     Dates: start: 20180409, end: 20180831

REACTIONS (3)
  - Tremor [Unknown]
  - Depressed mood [Unknown]
  - Spinal disorder [Unknown]
